FAERS Safety Report 6815035-9 (Version None)
Quarter: 2010Q2

REPORT INFORMATION
  Report Type: 
  Country: None (occurrence: None)
  Receive Date: 20100630
  Receipt Date: 20100630
  Transmission Date: 20101027
  Serious: Yes (Death)
  Sender: FDA-Public Use
  Company Number: None

PATIENT
  Age: 51 Year
  Sex: Female
  Weight: 105 kg

DRUGS (1)
  1. ELMIRON [Suspect]
     Indication: URINARY TRACT INFECTION

REACTIONS (2)
  - INTESTINAL HAEMORRHAGE [None]
  - PROCEDURAL HYPOTENSION [None]
